FAERS Safety Report 13179141 (Version 1)
Quarter: 2017Q1

REPORT INFORMATION
  Report Type: Spontaneous
  Country: CA (occurrence: CA)
  Receive Date: 20170202
  Receipt Date: 20170202
  Transmission Date: 20170428
  Serious: Yes (Hospitalization, Other)
  Sender: FDA-Public Use
  Company Number: CA-ORION CORPORATION ORION PHARMA-TREX2016-2631

PATIENT
  Age: 20 Year
  Sex: Female
  Weight: 46 kg

DRUGS (5)
  1. PREDNISONE. [Concomitant]
     Active Substance: PREDNISONE
     Dosage: TAPER OFF 5 MG WEEKLY
     Route: 065
  2. METHOTREXATE (TRADE NAME UNKNOWN) [Suspect]
     Active Substance: METHOTREXATE
     Route: 048
     Dates: start: 201605
  3. INFLECTRA [Suspect]
     Active Substance: INFLIXIMAB-DYYB
     Indication: CROHN^S DISEASE
     Dosage: CYCLIC, EVERY 0, 2, 6 WEEKS, THEN EVERY 8 WEEKS FOR 6 MONTHS
     Route: 042
     Dates: start: 20160902
  4. FOLIC ACID. [Concomitant]
     Active Substance: FOLIC ACID
     Dosage: CYCLIC; 6 DAYS EVERY WEEK
     Route: 048
  5. METHOTREXATE (TRADE NAME UNKNOWN) [Suspect]
     Active Substance: METHOTREXATE
     Route: 058
     Dates: start: 2013, end: 201305

REACTIONS (5)
  - Therapeutic response decreased [Unknown]
  - Abdominal pain upper [Unknown]
  - Hypochromasia [Unknown]
  - Nasopharyngitis [Recovered/Resolved]
  - Microcytosis [Unknown]

NARRATIVE: CASE EVENT DATE: 20160726
